FAERS Safety Report 25682208 (Version 1)
Quarter: 2025Q3

REPORT INFORMATION
  Report Type: Spontaneous
  Country: US (occurrence: None)
  Receive Date: 20250814
  Receipt Date: 20250814
  Transmission Date: 20251020
  Serious: Yes (Disabling, Other)
  Sender: FDA-CTU
  Company Number: None

PATIENT
  Age: 79 Year
  Sex: Female
  Weight: 67.5 kg

DRUGS (27)
  1. ZOLEDRONIC ACID [Suspect]
     Active Substance: ZOLEDRONIC ACID
     Indication: Osteoporosis
     Dates: start: 20250401, end: 20250401
  2. Armous Thyroid [Concomitant]
  3. CLONIDINE [Concomitant]
     Active Substance: CLONIDINE
  4. CYCLOBENZAPRINE [Concomitant]
     Active Substance: CYCLOBENZAPRINE
  5. FUROSEMIDE [Concomitant]
     Active Substance: FUROSEMIDE
  6. HYDROCODONE BITARTRATE AND ACETAMINOPHEN [Concomitant]
     Active Substance: ACETAMINOPHEN\HYDROCODONE BITARTRATE
  7. LIDOCAINE PATCH [Concomitant]
     Active Substance: LIDOCAINE
  8. ipraproprium bromide [Concomitant]
  9. VENLAFAXINE [Concomitant]
     Active Substance: VENLAFAXINE HYDROCHLORIDE
  10. ZOLPIDEM [Concomitant]
     Active Substance: ZOLPIDEM TARTRATE
  11. sublingual [Concomitant]
  12. Resmed adjustable CPAP [Concomitant]
  13. Frequency Specific Microurrent [Concomitant]
  14. Empi Stimulator [Concomitant]
  15. ZYRTEC [Concomitant]
     Active Substance: CETIRIZINE HYDROCHLORIDE
  16. TAURINE [Concomitant]
     Active Substance: TAURINE
  17. Solgar WM 75 [Concomitant]
  18. SIMETHICONE (DIMETHICONE) [Concomitant]
     Active Substance: DIMETHICONE
  19. VITAMIN C [Concomitant]
     Active Substance: ASCORBIC ACID
  20. MAGNESIUM [Concomitant]
     Active Substance: MAGNESIUM
  21. NAPROXEN [Concomitant]
     Active Substance: NAPROXEN
  22. MOLYBDENUM [Concomitant]
     Active Substance: MOLYBDENUM
  23. GUAIFENESIN [Concomitant]
     Active Substance: GUAIFENESIN
  24. FAMOTIDINE [Concomitant]
     Active Substance: FAMOTIDINE
  25. STOOL SOFTENER (DOCUSATE) [Concomitant]
     Active Substance: DOCUSATE
  26. TRICHOLINE CITRATE [Concomitant]
     Active Substance: TRICHOLINE CITRATE
  27. CALCIUM [Concomitant]
     Active Substance: CALCIUM

REACTIONS (27)
  - Fatigue [None]
  - Arthralgia [None]
  - Bone pain [None]
  - Back pain [None]
  - Myofascial pain syndrome [None]
  - Complex regional pain syndrome [None]
  - Fibromyalgia [None]
  - Insomnia [None]
  - Pruritus [None]
  - Pruritus [None]
  - Hypophagia [None]
  - Cognitive disorder [None]
  - Judgement impaired [None]
  - Myalgia [None]
  - Chills [None]
  - Hypoacusis [None]
  - Visual impairment [None]
  - Balance disorder [None]
  - Fine motor skill dysfunction [None]
  - Fall [None]
  - Dyspnoea [None]
  - Headache [None]
  - Confusional state [None]
  - Grip strength decreased [None]
  - Weight increased [None]
  - Abdominal distension [None]
  - Oesophageal disorder [None]

NARRATIVE: CASE EVENT DATE: 20250412
